FAERS Safety Report 15724427 (Version 3)
Quarter: 2021Q1

REPORT INFORMATION
  Report Type: Report from Study
  Country: US (occurrence: US)
  Receive Date: 20181214
  Receipt Date: 20210331
  Transmission Date: 20210419
  Serious: Yes (Hospitalization)
  Sender: FDA-Public Use
  Company Number: US-ALEXION PHARMACEUTICALS INC.-A201816478

PATIENT
  Age: 24 Year
  Sex: Male
  Weight: 79 kg

DRUGS (143)
  1. VITAMIN D3 [Concomitant]
     Active Substance: CHOLECALCIFEROL
     Indication: VITAMIN D DECREASED
     Dosage: 5000 IU, QD
     Route: 048
     Dates: start: 20170901
  2. VITAMIN D3 [Concomitant]
     Active Substance: CHOLECALCIFEROL
     Dosage: 1000 IU, QD
     Route: 048
     Dates: start: 20180712, end: 20180724
  3. LASIX [Concomitant]
     Active Substance: FUROSEMIDE
     Indication: HYPERVOLAEMIA
     Dosage: 80 MG, BID
     Route: 048
     Dates: start: 20180823, end: 20180831
  4. HEPARIN [Concomitant]
     Active Substance: HEPARIN SODIUM
     Indication: ATRIAL THROMBOSIS
     Dosage: 5000 IU, BID
     Route: 042
     Dates: start: 20180714, end: 20180724
  5. PREDNISONE. [Concomitant]
     Active Substance: PREDNISONE
     Dosage: 10 MG, QD
     Route: 048
     Dates: start: 20170504
  6. PREDNISONE. [Concomitant]
     Active Substance: PREDNISONE
     Dosage: 10 MG, QD
     Route: 048
     Dates: end: 20180911
  7. NORCO [Concomitant]
     Active Substance: ACETAMINOPHEN\HYDROCODONE BITARTRATE
     Dosage: 7.5/325 MG, SINGLE
     Route: 048
     Dates: start: 20180916, end: 20180916
  8. BENADRYL [Concomitant]
     Active Substance: DIPHENHYDRAMINE HYDROCHLORIDE
     Dosage: 50 MG, PRN
     Route: 042
     Dates: start: 20180826, end: 20180831
  9. BENADRYL [Concomitant]
     Active Substance: DIPHENHYDRAMINE HYDROCHLORIDE
     Dosage: 25 MG, SINGLE
     Route: 042
     Dates: start: 20180911, end: 20180911
  10. BENADRYL [Concomitant]
     Active Substance: DIPHENHYDRAMINE HYDROCHLORIDE
     Dosage: 25 MG, SINGLE
     Route: 042
     Dates: start: 20180912, end: 20180912
  11. LISINOPRIL. [Concomitant]
     Active Substance: LISINOPRIL
     Indication: HYPERTENSION
     Dosage: 10 MG, QD
     Route: 048
     Dates: start: 20171004
  12. SODIUM CHLORIDE. [Concomitant]
     Active Substance: SODIUM CHLORIDE
     Indication: FLUID REPLACEMENT
     Dosage: 250 ML, PRN
     Route: 042
     Dates: start: 20180214
  13. SODIUM CHLORIDE. [Concomitant]
     Active Substance: SODIUM CHLORIDE
     Dosage: UNK
     Route: 042
     Dates: start: 20180602
  14. ARANESP [Concomitant]
     Active Substance: DARBEPOETIN ALFA
     Dosage: 100 ?G, SINGLE
     Route: 058
     Dates: start: 20180830, end: 20180830
  15. ALBUMIN HUMAN [Concomitant]
     Active Substance: ALBUMIN HUMAN
     Indication: PRODUCT USED FOR UNKNOWN INDICATION
     Dosage: 12.5 G, PRN Q4H
     Route: 042
     Dates: start: 20180629
  16. ZOFRAN [Concomitant]
     Active Substance: ONDANSETRON HYDROCHLORIDE
     Indication: NAUSEA
     Dosage: 4 MG, PRN Q8H
     Route: 042
     Dates: start: 20180711, end: 20180724
  17. NARCAN [Concomitant]
     Active Substance: NALOXONE HYDROCHLORIDE
     Indication: DRUG USE DISORDER
     Dosage: 0.2 MG, PRN
     Route: 042
     Dates: start: 20180712, end: 20180724
  18. VITAMIN D3 [Concomitant]
     Active Substance: CHOLECALCIFEROL
     Dosage: 5000 IU, QD
     Route: 048
     Dates: start: 20171004
  19. ATARAX [Concomitant]
     Active Substance: HYDROXYZINE HYDROCHLORIDE
     Indication: PRURITUS
     Dosage: 25 MG, PRN Q8H
     Route: 048
     Dates: start: 20180712, end: 20180724
  20. ATARAX [Concomitant]
     Active Substance: HYDROXYZINE HYDROCHLORIDE
     Dosage: 50 MG, PRN Q8H
     Route: 048
     Dates: start: 20180915, end: 20180919
  21. HEPARIN [Concomitant]
     Active Substance: HEPARIN SODIUM
     Indication: ANTICOAGULANT THERAPY
     Dosage: 5300 IU, SINGLE
     Route: 042
     Dates: start: 20180823, end: 20180823
  22. HEPARIN [Concomitant]
     Active Substance: HEPARIN SODIUM
     Dosage: 500 IU, UNK
     Route: 042
     Dates: start: 20180823, end: 20180823
  23. PREDNISONE. [Concomitant]
     Active Substance: PREDNISONE
     Dosage: 10 MG, QD
     Route: 048
     Dates: start: 20180426
  24. PREDNISONE. [Concomitant]
     Active Substance: PREDNISONE
     Dosage: 10 MG, QD
     Route: 048
     Dates: start: 20180823, end: 20180831
  25. CARVEDILOL. [Concomitant]
     Active Substance: CARVEDILOL
     Dosage: 3.125 MG, BID
     Route: 048
     Dates: start: 20171004
  26. LOPERAMIDE [Concomitant]
     Active Substance: LOPERAMIDE
     Indication: DIARRHOEA
     Dosage: 2 MG, QID
     Route: 048
     Dates: start: 20170507
  27. SYNTHROID [Concomitant]
     Active Substance: LEVOTHYROXINE SODIUM
     Indication: HYPOTHYROIDISM
     Dosage: 75 ?G, QD
     Route: 048
     Dates: start: 20170821
  28. SYNTHROID [Concomitant]
     Active Substance: LEVOTHYROXINE SODIUM
     Dosage: 75 ?G, QD
     Route: 050
     Dates: start: 20170902
  29. SYNTHROID [Concomitant]
     Active Substance: LEVOTHYROXINE SODIUM
     Dosage: 75 ?G, QD
     Route: 048
     Dates: end: 20180911
  30. POTASSIUM CHLORIDE. [Concomitant]
     Active Substance: POTASSIUM CHLORIDE
     Dosage: 20 MEQ, QD
     Route: 048
     Dates: start: 20171004
  31. BENADRYL [Concomitant]
     Active Substance: DIPHENHYDRAMINE HYDROCHLORIDE
     Indication: INSOMNIA
     Dosage: 25 MG, PRN Q6H
     Route: 048
     Dates: start: 20170903
  32. SODIUM CHLORIDE. [Concomitant]
     Active Substance: SODIUM CHLORIDE
     Dosage: 2400 ML, SINGLE
     Route: 042
     Dates: start: 20180911, end: 20180911
  33. SODIUM CHLORIDE. [Concomitant]
     Active Substance: SODIUM CHLORIDE
     Dosage: 10 ML, BID
     Route: 042
     Dates: start: 20180911, end: 20180919
  34. SODIUM CHLORIDE. [Concomitant]
     Active Substance: SODIUM CHLORIDE
     Dosage: 10 ML, PRN
     Route: 042
     Dates: start: 20180913, end: 20180919
  35. FUROSEMIDE. [Concomitant]
     Active Substance: FUROSEMIDE
     Dosage: 80 MG, BID
     Route: 048
     Dates: start: 20180911, end: 20180919
  36. CALAMINE W/ZINC [Concomitant]
     Indication: PRODUCT USED FOR UNKNOWN INDICATION
     Dosage: UNK UNK, PRN QID
     Route: 061
     Dates: start: 20180713, end: 20180724
  37. FOLIC ACID. [Concomitant]
     Active Substance: FOLIC ACID
     Indication: VITAMIN SUPPLEMENTATION
     Dosage: 1 MG, QD
     Route: 048
     Dates: end: 20180911
  38. PEPCID [Concomitant]
     Active Substance: FAMOTIDINE
     Indication: GASTROOESOPHAGEAL REFLUX DISEASE
     Dosage: 20 MG, QD
     Route: 048
     Dates: start: 20180721
  39. PEPCID [Concomitant]
     Active Substance: FAMOTIDINE
     Dosage: 20 MG, QD
     Route: 048
     Dates: end: 20180911
  40. FLORINEF ACETATE [Concomitant]
     Active Substance: FLUDROCORTISONE ACETATE
     Dosage: 0.2 MG, QD
     Route: 048
     Dates: start: 20180912, end: 20180919
  41. FLONASE [Concomitant]
     Active Substance: FLUTICASONE PROPIONATE
     Dosage: 100 ?G, PRN
     Route: 045
     Dates: start: 20180911, end: 20180919
  42. FOLVITE [Concomitant]
     Active Substance: FOLIC ACID
     Indication: VITAMIN SUPPLEMENTATION
     Dosage: 1 MG, QD
     Route: 048
     Dates: start: 20180712, end: 20180724
  43. PREDNISONE. [Concomitant]
     Active Substance: PREDNISONE
     Indication: GLOMERULONEPHRITIS MINIMAL LESION
     Dosage: 10 MG, QD
     Route: 048
     Dates: start: 20170420
  44. PREDNISONE. [Concomitant]
     Active Substance: PREDNISONE
     Dosage: 10 MG, QD
     Route: 048
     Dates: start: 20180712, end: 20180724
  45. CARVEDILOL. [Concomitant]
     Active Substance: CARVEDILOL
     Dosage: 12.5 MG, BID
     Route: 048
     Dates: start: 20170507
  46. CARVEDILOL. [Concomitant]
     Active Substance: CARVEDILOL
     Dosage: 3.125 MG, BID
     Route: 048
     Dates: start: 20170910
  47. SYNTHROID [Concomitant]
     Active Substance: LEVOTHYROXINE SODIUM
     Dosage: 75 ?G, QD
     Route: 048
     Dates: start: 20180912, end: 20180913
  48. BENADRYL [Concomitant]
     Active Substance: DIPHENHYDRAMINE HYDROCHLORIDE
     Dosage: 12.5 MG, SINGLE
     Route: 042
     Dates: start: 20180911, end: 20180911
  49. BENADRYL [Concomitant]
     Active Substance: DIPHENHYDRAMINE HYDROCHLORIDE
     Dosage: 25 MG, SINGLE
     Route: 048
     Dates: start: 20180919, end: 20180919
  50. SODIUM CHLORIDE. [Concomitant]
     Active Substance: SODIUM CHLORIDE
     Dosage: 1000 ML, SINGLE
     Route: 042
     Dates: start: 20180823, end: 20180826
  51. SODIUM CHLORIDE. [Concomitant]
     Active Substance: SODIUM CHLORIDE
     Dosage: 20 ML, PRN
     Route: 042
     Dates: start: 20180913, end: 20180919
  52. TRAMADOL. [Concomitant]
     Active Substance: TRAMADOL
     Dosage: 100 MG, PRN TID
     Route: 048
     Dates: start: 20180911, end: 20180919
  53. ZOFRAN [Concomitant]
     Active Substance: ONDANSETRON HYDROCHLORIDE
     Dosage: 4 MG, PRN Q8H
     Route: 048
     Dates: start: 20180911, end: 20180919
  54. TYLENOL [Concomitant]
     Active Substance: ACETAMINOPHEN
     Indication: PRODUCT USED FOR UNKNOWN INDICATION
     Dosage: 650 MG, PRN Q4H
     Route: 048
     Dates: start: 20180711, end: 20180724
  55. TYLENOL [Concomitant]
     Active Substance: ACETAMINOPHEN
     Dosage: 650 MG, PRN Q6H
     Route: 048
     Dates: start: 20180823, end: 20180831
  56. LOSARTAN. [Concomitant]
     Active Substance: LOSARTAN
     Dosage: 100 MG, QD
     Route: 048
     Dates: end: 20180911
  57. SOLIRIS [Suspect]
     Active Substance: ECULIZUMAB
     Dosage: 900 MG, Q2W
     Route: 042
  58. SOLIRIS [Suspect]
     Active Substance: ECULIZUMAB
     Dosage: UNK
     Route: 065
     Dates: start: 20180823
  59. FLONASE [Concomitant]
     Active Substance: FLUTICASONE PROPIONATE
     Dosage: 50 ?G, PRN QD
     Route: 045
     Dates: start: 20180911, end: 20180919
  60. HEPARIN [Concomitant]
     Active Substance: HEPARIN SODIUM
     Dosage: 2000 IU, SINGLE
     Route: 042
     Dates: start: 20180823, end: 20180826
  61. LEVOTHYROXINE. [Concomitant]
     Active Substance: LEVOTHYROXINE
     Indication: PRODUCT USED FOR UNKNOWN INDICATION
     Dosage: 75 ?G, QD
     Route: 048
  62. COZAAR [Concomitant]
     Active Substance: LOSARTAN POTASSIUM
     Indication: PRODUCT USED FOR UNKNOWN INDICATION
     Dosage: 100 MG, QD
     Route: 048
  63. RENVELA [Concomitant]
     Active Substance: SEVELAMER CARBONATE
     Dosage: 800 MG, TID
     Route: 048
     Dates: end: 20180912
  64. PROTONIX [Concomitant]
     Active Substance: PANTOPRAZOLE SODIUM
     Indication: GASTROOESOPHAGEAL REFLUX DISEASE
     Dosage: 40 MG, QD
     Route: 048
     Dates: start: 20170504
  65. BENADRYL [Concomitant]
     Active Substance: DIPHENHYDRAMINE HYDROCHLORIDE
     Dosage: 25 MG, PRN
     Route: 042
     Dates: start: 20180825, end: 20180826
  66. BENADRYL [Concomitant]
     Active Substance: DIPHENHYDRAMINE HYDROCHLORIDE
     Dosage: 25 MG, SINGLE
     Route: 042
     Dates: start: 20180914, end: 20180914
  67. SODIUM CHLORIDE. [Concomitant]
     Active Substance: SODIUM CHLORIDE
     Dosage: 1000 ML, SINGLE
     Route: 042
     Dates: start: 20180721, end: 20180724
  68. SODIUM CHLORIDE. [Concomitant]
     Active Substance: SODIUM CHLORIDE
     Dosage: UNK
     Route: 042
     Dates: start: 20180828, end: 20180828
  69. SODIUM CHLORIDE. [Concomitant]
     Active Substance: SODIUM CHLORIDE
     Dosage: UNK
     Route: 042
     Dates: start: 20180912, end: 20180912
  70. SODIUM CHLORIDE. [Concomitant]
     Active Substance: SODIUM CHLORIDE
     Dosage: UNK
     Route: 042
     Dates: start: 20180914, end: 20180915
  71. TRAMADOL. [Concomitant]
     Active Substance: TRAMADOL
     Dosage: 50 MG, PRN TID
     Route: 048
     Dates: start: 20180911, end: 20180917
  72. TYLENOL [Concomitant]
     Active Substance: ACETAMINOPHEN
     Dosage: 650 MG, PRN Q6H
     Route: 048
     Dates: start: 20180912, end: 20180919
  73. TYLENOL [Concomitant]
     Active Substance: ACETAMINOPHEN
     Dosage: 500 MG, UNK
     Route: 048
     Dates: start: 20180915, end: 20180915
  74. METOPROLOL SUCCINATE. [Concomitant]
     Active Substance: METOPROLOL SUCCINATE
     Indication: HYPERTENSION
     Dosage: 50 MG, QD
     Route: 048
     Dates: start: 20180723, end: 20180724
  75. TUMS [Concomitant]
     Active Substance: CALCIUM CARBONATE
     Indication: DYSPEPSIA
     Dosage: 500 MG, TID PRN
     Route: 048
  76. FLORINEF ACETATE [Concomitant]
     Active Substance: FLUDROCORTISONE ACETATE
     Indication: PRODUCT USED FOR UNKNOWN INDICATION
     Dosage: 0.2 MG, QD
     Route: 048
     Dates: start: 20180712, end: 20180724
  77. FLORINEF ACETATE [Concomitant]
     Active Substance: FLUDROCORTISONE ACETATE
     Dosage: 0.1 MG, QD
     Route: 048
     Dates: end: 20180911
  78. FLONASE [Concomitant]
     Active Substance: FLUTICASONE PROPIONATE
     Indication: RHINITIS ALLERGIC
     Dosage: 100 ?G, PRN QD
     Route: 045
     Dates: start: 20180712, end: 20180724
  79. LASIX [Concomitant]
     Active Substance: FUROSEMIDE
     Indication: NEPHROTIC SYNDROME
     Dosage: 80 MG, BID
     Route: 048
     Dates: start: 20170504
  80. ATARAX [Concomitant]
     Active Substance: HYDROXYZINE HYDROCHLORIDE
     Dosage: 25 MG, PRN Q8H
     Route: 048
     Dates: start: 20180911, end: 20180915
  81. RENVELA [Concomitant]
     Active Substance: SEVELAMER CARBONATE
     Indication: PRODUCT USED FOR UNKNOWN INDICATION
     Dosage: 800 MG, TID
     Route: 048
     Dates: start: 20180715, end: 20180724
  82. SYNTHROID [Concomitant]
     Active Substance: LEVOTHYROXINE SODIUM
     Dosage: 75 ?G, QD
     Route: 048
     Dates: start: 20180823, end: 20180831
  83. SODIUM CHLORIDE. [Concomitant]
     Active Substance: SODIUM CHLORIDE
     Dosage: 500 ML, PRN
     Route: 042
     Dates: start: 20180514
  84. SODIUM CHLORIDE. [Concomitant]
     Active Substance: SODIUM CHLORIDE
     Dosage: 250 ML, PRN
     Route: 040
     Dates: start: 20180722
  85. ARANESP [Concomitant]
     Active Substance: DARBEPOETIN ALFA
     Dosage: 100 ?G, QW
     Route: 058
     Dates: start: 20180824, end: 20180830
  86. ARANESP [Concomitant]
     Active Substance: DARBEPOETIN ALFA
     Dosage: 60 ?G, SINGLE
     Route: 058
     Dates: start: 20180913, end: 20180913
  87. LOSARTAN. [Concomitant]
     Active Substance: LOSARTAN
     Indication: HYPERTENSION
     Dosage: 100 MG, QD
     Route: 048
     Dates: start: 20180712, end: 20180724
  88. ULTRAM [Concomitant]
     Active Substance: TRAMADOL HYDROCHLORIDE
     Indication: PAIN
     Dosage: 50 MG, PRN Q6H
     Route: 048
     Dates: start: 20180712, end: 20180724
  89. HYDROCORTISONE. [Concomitant]
     Active Substance: HYDROCORTISONE
     Indication: PRODUCT USED FOR UNKNOWN INDICATION
     Dosage: 25 MG, QD
     Route: 048
  90. PEPCID [Concomitant]
     Active Substance: FAMOTIDINE
     Dosage: 20 MG, QD
     Route: 048
     Dates: start: 20180912, end: 20180919
  91. PEPCID [Concomitant]
     Active Substance: FAMOTIDINE
     Dosage: 20 MG, SINGLE
     Route: 048
     Dates: start: 20180915, end: 20180915
  92. FLORINEF ACETATE [Concomitant]
     Active Substance: FLUDROCORTISONE ACETATE
     Dosage: 0.2 MG, QD
     Route: 048
     Dates: start: 20180823, end: 20180831
  93. ATARAX [Concomitant]
     Active Substance: HYDROXYZINE HYDROCHLORIDE
     Dosage: 25 MG, PRN Q8H
     Route: 048
     Dates: start: 20180911, end: 20180913
  94. DELTASONE [Concomitant]
     Active Substance: PREDNISONE
     Indication: PRODUCT USED FOR UNKNOWN INDICATION
     Dosage: 10 MG, QD
     Route: 048
  95. CARVEDILOL. [Concomitant]
     Active Substance: CARVEDILOL
     Dosage: 25 MG, BID
     Route: 048
     Dates: start: 20180911, end: 20180911
  96. POTASSIUM CHLORIDE. [Concomitant]
     Active Substance: POTASSIUM CHLORIDE
     Dosage: 20 MEQ, QD
     Route: 048
     Dates: start: 20180827, end: 20180827
  97. NORCO [Concomitant]
     Active Substance: ACETAMINOPHEN\HYDROCODONE BITARTRATE
     Dosage: 10/325 MG, PRN Q6H
     Route: 048
     Dates: start: 20171004
  98. BENADRYL [Concomitant]
     Active Substance: DIPHENHYDRAMINE HYDROCHLORIDE
     Dosage: 25 MG, PRN Q6H
     Route: 048
     Dates: start: 20180713, end: 20180724
  99. BENADRYL [Concomitant]
     Active Substance: DIPHENHYDRAMINE HYDROCHLORIDE
     Dosage: 25 MG, SINGLE
     Route: 042
     Dates: start: 20180912, end: 20180912
  100. BENADRYL [Concomitant]
     Active Substance: DIPHENHYDRAMINE HYDROCHLORIDE
     Dosage: 50 MG, SINGLE
     Route: 048
     Dates: start: 20180915, end: 20180915
  101. BENADRYL [Concomitant]
     Active Substance: DIPHENHYDRAMINE HYDROCHLORIDE
     Dosage: 50 MG, SINGLE
     Route: 042
     Dates: start: 20180918, end: 20180918
  102. SODIUM CHLORIDE. [Concomitant]
     Active Substance: SODIUM CHLORIDE
     Dosage: UNK
     Route: 042
     Dates: start: 20180826, end: 20180827
  103. SODIUM CHLORIDE. [Concomitant]
     Active Substance: SODIUM CHLORIDE
     Dosage: 10 ML, BID
     Route: 042
     Dates: start: 20180911, end: 20180919
  104. ARANESP [Concomitant]
     Active Substance: DARBEPOETIN ALFA
     Indication: NEPHROGENIC ANAEMIA
     Dosage: 100 ?G, QW
     Route: 058
     Dates: start: 20180611
  105. ZOFRAN [Concomitant]
     Active Substance: ONDANSETRON HYDROCHLORIDE
     Dosage: 4 MG, PRN Q8H
     Route: 048
     Dates: start: 20180714, end: 20180724
  106. TYLENOL [Concomitant]
     Active Substance: ACETAMINOPHEN
     Dosage: 325 MG, SINGLE
     Route: 048
     Dates: start: 20180912, end: 20180912
  107. LOSARTAN. [Concomitant]
     Active Substance: LOSARTAN
     Dosage: 100 MG, QD
     Route: 048
     Dates: start: 20180823, end: 20180831
  108. LOSARTAN. [Concomitant]
     Active Substance: LOSARTAN
     Dosage: 100 MG, QD
     Route: 048
     Dates: start: 20180912, end: 20180919
  109. METOPROLOL SUCCINATE. [Concomitant]
     Active Substance: METOPROLOL SUCCINATE
     Dosage: 50 MG, QD
     Route: 048
  110. VITAMIN D3 [Concomitant]
     Active Substance: CHOLECALCIFEROL
     Dosage: 1000 IU, QD
     Route: 048
     Dates: start: 20180912, end: 20180919
  111. CATAPRES                           /00171101/ [Concomitant]
     Active Substance: CLONIDINE
     Indication: HYPERTENSION
     Dosage: 0.1 MG, Q8H PRN
     Route: 048
  112. FLONASE [Concomitant]
     Active Substance: FLUTICASONE PROPIONATE
     Dosage: 50 ?G, PRN QD
     Route: 045
     Dates: start: 20180823, end: 20180831
  113. HEPARIN [Concomitant]
     Active Substance: HEPARIN SODIUM
     Dosage: UNK
     Route: 042
     Dates: start: 20180829, end: 20180831
  114. SYNTHROID [Concomitant]
     Active Substance: LEVOTHYROXINE SODIUM
     Dosage: 75 ?G, QD
     Route: 048
     Dates: start: 20180712, end: 20180724
  115. SYNTHROID [Concomitant]
     Active Substance: LEVOTHYROXINE SODIUM
     Dosage: 75 ?G, QD
     Route: 048
  116. FLUDROCORTISONE [Concomitant]
     Active Substance: FLUDROCORTISONE
     Indication: ADDISON^S DISEASE
     Dosage: 0.2 MG, QD
     Route: 048
     Dates: start: 20170821
  117. FLUDROCORTISONE [Concomitant]
     Active Substance: FLUDROCORTISONE
     Dosage: 0.2 MG, QD
     Route: 048
     Dates: start: 20170901
  118. FLUDROCORTISONE [Concomitant]
     Active Substance: FLUDROCORTISONE
     Dosage: 0.2 MG, QD
     Route: 048
  119. POTASSIUM CHLORIDE. [Concomitant]
     Active Substance: POTASSIUM CHLORIDE
     Indication: HYPOKALAEMIA
     Dosage: 20 MEQ, QD
     Route: 048
     Dates: start: 20170901
  120. NORCO [Concomitant]
     Active Substance: ACETAMINOPHEN\HYDROCODONE BITARTRATE
     Indication: PAIN
     Dosage: 10/325 MG, PRN Q6H
     Route: 048
     Dates: start: 20170901
  121. BENADRYL [Concomitant]
     Active Substance: DIPHENHYDRAMINE HYDROCHLORIDE
     Indication: PRURITUS
     Dosage: 25 MG, QID
     Route: 048
     Dates: start: 20170919
  122. BENADRYL [Concomitant]
     Active Substance: DIPHENHYDRAMINE HYDROCHLORIDE
     Dosage: 25 MG, SINGLE
     Route: 042
     Dates: start: 20180915, end: 20180915
  123. SODIUM CHLORIDE. [Concomitant]
     Active Substance: SODIUM CHLORIDE
     Indication: CATHETER MANAGEMENT
     Dosage: 250 ML, PRN
     Route: 040
     Dates: start: 20180510
  124. SODIUM CHLORIDE. [Concomitant]
     Active Substance: SODIUM CHLORIDE
     Dosage: 250 ML, PRN
     Route: 042
     Dates: start: 20180823, end: 20180826
  125. SODIUM CHLORIDE. [Concomitant]
     Active Substance: SODIUM CHLORIDE
     Dosage: 10 ML, TID
     Route: 042
     Dates: start: 20180913, end: 20180919
  126. TRAMADOL. [Concomitant]
     Active Substance: TRAMADOL
     Indication: PAIN
     Dosage: 50 MG, TID
     Route: 048
     Dates: start: 20180526
  127. ARANESP [Concomitant]
     Active Substance: DARBEPOETIN ALFA
     Indication: ANAEMIA
     Dosage: 100 ?G, QW
     Route: 058
     Dates: start: 20180717, end: 20180724
  128. CLONIDINE. [Concomitant]
     Active Substance: CLONIDINE
     Dosage: 0.1 MG, PRN Q8H
     Route: 048
     Dates: start: 20180823, end: 20180831
  129. CLONIDINE. [Concomitant]
     Active Substance: CLONIDINE
     Dosage: 0.1 MG, PRN Q8H
     Route: 048
     Dates: start: 20180911, end: 20180919
  130. SOLIRIS [Suspect]
     Active Substance: ECULIZUMAB
     Indication: PAROXYSMAL NOCTURNAL HAEMOGLOBINURIA
     Dosage: UNK
     Route: 065
     Dates: start: 20160526
  131. HEPARIN [Concomitant]
     Active Substance: HEPARIN SODIUM
     Dosage: 500 IU, SINGLE
     Route: 058
     Dates: start: 20180831, end: 20180831
  132. RENVELA [Concomitant]
     Active Substance: SEVELAMER CARBONATE
     Dosage: 800 MG, TID
     Route: 048
     Dates: start: 20180823, end: 20180831
  133. PREDNISONE. [Concomitant]
     Active Substance: PREDNISONE
     Dosage: 10 MG, QD
     Route: 048
     Dates: start: 20170902
  134. BACTROBAN [Concomitant]
     Active Substance: MUPIROCIN\MUPIROCIN CALCIUM
     Indication: PRODUCT USED FOR UNKNOWN INDICATION
     Dosage: UNK UNK, BID
     Route: 061
     Dates: start: 20170504
  135. CARVEDILOL. [Concomitant]
     Active Substance: CARVEDILOL
     Indication: HYPERTENSION
     Dosage: 12.5 MG, BID
     Route: 048
     Dates: start: 20170504
  136. CARVEDILOL. [Concomitant]
     Active Substance: CARVEDILOL
     Dosage: 25 MG, BID
     Route: 048
     Dates: start: 20180911, end: 20180919
  137. SYNTHROID [Concomitant]
     Active Substance: LEVOTHYROXINE SODIUM
     Dosage: 75 ?G, QD
     Route: 048
     Dates: start: 20180914, end: 20180919
  138. BENADRYL [Concomitant]
     Active Substance: DIPHENHYDRAMINE HYDROCHLORIDE
     Dosage: 25 MG, PRN Q4H
     Route: 048
     Dates: start: 20180913, end: 20180919
  139. TORSEMIDE. [Concomitant]
     Active Substance: TORSEMIDE
     Indication: HYPERVOLAEMIA
     Dosage: 40 MG, BID
     Route: 048
     Dates: start: 20171004
  140. TORSEMIDE. [Concomitant]
     Active Substance: TORSEMIDE
     Dosage: 80 MG, BID
     Route: 048
     Dates: start: 20180603
  141. CLONIDINE. [Concomitant]
     Active Substance: CLONIDINE
     Indication: HYPERTENSION
     Dosage: 0.1 MG, PRN Q8H
     Route: 048
     Dates: start: 20180712, end: 20180724
  142. FUROSEMIDE. [Concomitant]
     Active Substance: FUROSEMIDE
     Indication: HYPERVOLAEMIA
     Dosage: 80 MG, BID
     Route: 048
     Dates: start: 20180712, end: 20180724
  143. METOPROLOL. [Concomitant]
     Active Substance: METOPROLOL
     Indication: HYPERTENSION
     Dosage: 50 MG, QD
     Route: 048

REACTIONS (1)
  - Atrial thrombosis [Recovered/Resolved]

NARRATIVE: CASE EVENT DATE: 20180823
